FAERS Safety Report 4733338-9 (Version None)
Quarter: 2005Q3

REPORT INFORMATION
  Report Type: 
  Country: None (occurrence: None)
  Receive Date: 20050801
  Receipt Date: 20050801
  Transmission Date: 20060218
  Serious: Yes (Hospitalization)
  Sender: FDA-Public Use
  Company Number: None

PATIENT
  Age: 52 Year
  Sex: Male

DRUGS (8)
  1. TERAZOSIN [Suspect]
     Indication: BENIGN PROSTATIC HYPERPLASIA
     Dosage: 5 MG QHS
     Dates: start: 20040802
  2. VENLAFAXINE [Concomitant]
  3. ASPIRIN [Concomitant]
  4. NAPROXEN [Concomitant]
  5. OMEPRAZOLE [Concomitant]
  6. VIAGRA [Concomitant]
  7. LORATADINE [Concomitant]
  8. FENOFIBRATE [Concomitant]

REACTIONS (1)
  - SYNCOPE [None]
